FAERS Safety Report 14760358 (Version 1)
Quarter: 2018Q2

REPORT INFORMATION
  Report Type: Report from Study
  Country: None (occurrence: GB)
  Receive Date: 20180414
  Receipt Date: 20180414
  Transmission Date: 20180711
  Serious: Yes (Hospitalization)
  Sender: FDA-Public Use
  Company Number: GB-ABBVIE-18K-167-2320893-00

PATIENT
  Sex: Male

DRUGS (1)
  1. HUMIRA [Suspect]
     Active Substance: ADALIMUMAB
     Indication: CROHN^S DISEASE
     Route: 058
     Dates: start: 20161215

REACTIONS (5)
  - Intestinal obstruction [Unknown]
  - Lower respiratory tract infection [Unknown]
  - Crohn^s disease [Unknown]
  - Sinusitis [Unknown]
  - Fatigue [Unknown]
